FAERS Safety Report 13703809 (Version 1)
Quarter: 2017Q2

REPORT INFORMATION
  Report Type: Spontaneous
  Country: US (occurrence: US)
  Receive Date: 20170629
  Receipt Date: 20170629
  Transmission Date: 20170830
  Serious: No
  Sender: FDA-Public Use
  Company Number: US-IPSEN BIOPHARMACEUTICALS, INC.-2015-8218

PATIENT
  Sex: Female
  Weight: 95 kg

DRUGS (1)
  1. DYSPORT [Suspect]
     Active Substance: ABOBOTULINUMTOXINA
     Indication: SKIN WRINKLING
     Dosage: 45 UNITS
     Route: 065
     Dates: start: 20151015, end: 20151015

REACTIONS (2)
  - Product preparation error [Unknown]
  - Myalgia [None]

NARRATIVE: CASE EVENT DATE: 201510
